FAERS Safety Report 12502418 (Version 6)
Quarter: 2018Q4

REPORT INFORMATION
  Report Type: Spontaneous
  Country: US (occurrence: US)
  Receive Date: 20160627
  Receipt Date: 20181102
  Transmission Date: 20190204
  Serious: Yes (Hospitalization, Other)
  Sender: FDA-Public Use
  Company Number: US-ACTELION-A-US2016-136604

PATIENT
  Age: 20 Year
  Sex: Female

DRUGS (19)
  1. UPTRAVI [Suspect]
     Active Substance: SELEXIPAG
     Indication: PULMONARY ARTERIAL HYPERTENSION
     Dosage: 1600 MCG, BID
     Route: 048
     Dates: start: 20160421
  2. MELATONEX [Concomitant]
  3. ZOLOFT [Concomitant]
     Active Substance: SERTRALINE HYDROCHLORIDE
  4. LAMICTAL [Concomitant]
     Active Substance: LAMOTRIGINE
  5. UPTRAVI [Suspect]
     Active Substance: SELEXIPAG
     Dosage: 800 MCG, BID
     Route: 048
  6. NEXPLANON [Concomitant]
     Active Substance: ETONOGESTREL
  7. FUROSEMIDE. [Concomitant]
     Active Substance: FUROSEMIDE
  8. XARELTO [Concomitant]
     Active Substance: RIVAROXABAN
  9. OPSUMIT [Suspect]
     Active Substance: MACITENTAN
     Indication: PULMONARY ARTERIAL HYPERTENSION
     Dosage: 10 MG, QD
     Route: 048
     Dates: start: 20150825
  10. LOPRESSOR [Concomitant]
     Active Substance: METOPROLOL TARTRATE
  11. ADCIRCA [Concomitant]
     Active Substance: TADALAFIL
  12. DIGOXIN. [Concomitant]
     Active Substance: DIGOXIN
  13. MULTIVITAMIN [Concomitant]
     Active Substance: VITAMINS
  14. LASIX [Concomitant]
     Active Substance: FUROSEMIDE
  15. ENALAPRIL [Concomitant]
     Active Substance: ENALAPRIL
  16. LORAZEPAM. [Concomitant]
     Active Substance: LORAZEPAM
  17. ASPIRIN. [Concomitant]
     Active Substance: ASPIRIN
  18. UPTRAVI [Suspect]
     Active Substance: SELEXIPAG
     Dosage: UNK
     Route: 048
     Dates: start: 20160420
  19. TYLENOL [Concomitant]
     Active Substance: ACETAMINOPHEN

REACTIONS (8)
  - Pain in extremity [Unknown]
  - Nausea [Unknown]
  - Myalgia [Unknown]
  - Cardiac operation [Recovering/Resolving]
  - Atrial fibrillation [Not Recovered/Not Resolved]
  - Diarrhoea [Unknown]
  - Headache [Unknown]
  - Chest pain [Unknown]

NARRATIVE: CASE EVENT DATE: 20160513
